FAERS Safety Report 11199218 (Version 1)
Quarter: 2015Q2

REPORT INFORMATION
  Report Type: Spontaneous
  Country: US (occurrence: US)
  Receive Date: 20150618
  Receipt Date: 20150618
  Transmission Date: 20150821
  Serious: No
  Sender: FDA-Public Use
  Company Number: US-PFIZER INC-2015201024

PATIENT
  Age: 66 Year
  Sex: Female
  Weight: 82 kg

DRUGS (2)
  1. LYRICA [Suspect]
     Active Substance: PREGABALIN
     Indication: FIBROMYALGIA
     Dosage: 75 MG, 2X/DAY
     Dates: start: 20150319, end: 20150401
  2. LYRICA [Suspect]
     Active Substance: PREGABALIN
     Indication: NEURALGIA

REACTIONS (17)
  - Gastrointestinal disorder [Recovering/Resolving]
  - Neuralgia [Unknown]
  - Retching [Recovered/Resolved]
  - Abdominal pain upper [Recovered/Resolved]
  - Temperature intolerance [Unknown]
  - Decreased appetite [Recovered/Resolved]
  - Dehydration [Unknown]
  - Peripheral swelling [Unknown]
  - Hyperhidrosis [Unknown]
  - Drug ineffective [Unknown]
  - Swelling [Unknown]
  - Pain [Unknown]
  - Stomatitis [Unknown]
  - Weight decreased [Unknown]
  - Gastrointestinal pain [Unknown]
  - Feeding disorder [Recovered/Resolved]
  - Dysphagia [Recovered/Resolved]

NARRATIVE: CASE EVENT DATE: 20150321
